FAERS Safety Report 8926049 (Version 1)
Quarter: 2012Q4

REPORT INFORMATION
  Report Type: 
  Country: DE (occurrence: DE)
  Receive Date: 20121126
  Receipt Date: 20121126
  Transmission Date: 20130627
  Serious: Yes (Congenital Anomaly)
  Sender: FDA-Public Use
  Company Number: DE-MYLANLABS-2012S1023507

PATIENT
  Age: 0 Year
  Sex: Male
  Weight: 3.86 kg

DRUGS (4)
  1. PAROXETINE [Suspect]
     Dosage: 20 [mg/d ]/ dosage varying from 10mg/d to 20mg/d
     Route: 064
  2. NASIC [Concomitant]
     Route: 064
     Dates: start: 20111129, end: 20111201
  3. RENNIE /01739201/ [Concomitant]
     Dosage: 27-38.5 GW
     Route: 064
     Dates: end: 20120126
  4. FOLIC ACID [Concomitant]
     Indication: PROPHYLAXIS OF NEURAL TUBE DEFECT
     Dosage: 0-12 GW
     Route: 064
     Dates: start: 20110430

REACTIONS (3)
  - Cryptorchism [Unknown]
  - Foot deformity [Unknown]
  - Exposure during pregnancy [Recovered/Resolved]
